FAERS Safety Report 9845047 (Version 4)
Quarter: 2014Q2

REPORT INFORMATION
  Report Type: Spontaneous
  Country: US (occurrence: None)
  Receive Date: 20140122
  Receipt Date: 20140609
  Transmission Date: 20141212
  Serious: Yes (Other)
  Sender: FDA-Public Use
  Company Number: 2014-US-000072

PATIENT
  Age: 59 Year
  Sex: Female
  Weight: 49.4 kg

DRUGS (8)
  1. XYREM [Suspect]
     Indication: NARCOLEPSY
     Route: 048
     Dates: start: 201311, end: 2013
  2. XYREM [Suspect]
     Indication: NARCOLEPSY
     Route: 048
     Dates: start: 201311, end: 2013
  3. PREMARIN (ESTROGENS CONJUGATED) [Concomitant]
  4. PROTONIX (PANTOPRAZOLE SODIUM SESQUIHYDRATE) [Concomitant]
  5. METHOTREXATE IPF (METHOTREXATE SODIUM) [Concomitant]
  6. FOLIC ACID (FOLIC ACID) [Concomitant]
  7. ZENZEDI (DEXAMFETAMINE SULFATE) [Concomitant]
  8. PROCARDIA XL (NIFEDIPINE) [Concomitant]

REACTIONS (4)
  - Tachycardia [None]
  - Hyperglycaemia [None]
  - Eye oedema [None]
  - Hyperhidrosis [None]
